FAERS Safety Report 14970647 (Version 2)
Quarter: 2018Q2

REPORT INFORMATION
  Report Type: Spontaneous
  Country: US (occurrence: US)
  Receive Date: 20180604
  Receipt Date: 20180607
  Transmission Date: 20180711
  Serious: No
  Sender: FDA-Public Use
  Company Number: US-BIOGEN-2018BI00584165

PATIENT
  Age: 66 Year
  Sex: Female

DRUGS (2)
  1. TECFIDERA [Suspect]
     Active Substance: DIMETHYL FUMARATE
     Dosage: MAINTENANCE DOSE
     Route: 048
     Dates: start: 20180521
  2. TECFIDERA [Suspect]
     Active Substance: DIMETHYL FUMARATE
     Indication: MULTIPLE SCLEROSIS
     Dosage: STARTER DOSE
     Route: 048
     Dates: start: 20180521

REACTIONS (10)
  - Fibromyalgia [Unknown]
  - Hot flush [Recovered/Resolved]
  - Multiple sclerosis relapse [Unknown]
  - Vertigo [Unknown]
  - Multiple sclerosis [Unknown]
  - Feeling hot [Recovered/Resolved]
  - Ankle fracture [Unknown]
  - Paraesthesia [Recovered/Resolved]
  - Feeling abnormal [Unknown]
  - Arthritis [Unknown]

NARRATIVE: CASE EVENT DATE: 20180521
